FAERS Safety Report 21586110 (Version 1)
Quarter: 2022Q4

REPORT INFORMATION
  Report Type: Other
  Country: None (occurrence: US)
  Receive Date: 20221112
  Receipt Date: 20221112
  Transmission Date: 20230113
  Serious: Yes (Hospitalization, Other)
  Sender: FDA-Public Use
  Company Number: US-Changzhou Pharmaceutical Factory-2134797

PATIENT
  Age: 17 Year
  Sex: Male

DRUGS (4)
  1. DOXYCYCLINE HYCLATE [Suspect]
     Active Substance: DOXYCYCLINE HYCLATE
     Indication: Product used for unknown indication
     Route: 048
  2. RIFAMPIN [Interacting]
     Active Substance: RIFAMPIN
     Route: 065
  3. PREDNISONE [Interacting]
     Active Substance: PREDNISONE
     Route: 065
  4. METHYLPREDNISOLONE [Concomitant]
     Active Substance: METHYLPREDNISOLONE
     Route: 042

REACTIONS (4)
  - Vitritis [Recovered/Resolved]
  - Retinal haemorrhage [Recovering/Resolving]
  - Optic neuritis [Recovering/Resolving]
  - Drug interaction [Recovering/Resolving]
